FAERS Safety Report 7684388-4 (Version None)
Quarter: 2011Q3

REPORT INFORMATION
  Report Type: 
  Country: None (occurrence: None)
  Receive Date: 20110816
  Receipt Date: 20110809
  Transmission Date: 20111222
  Serious: Yes (Hospitalization)
  Sender: FDA-Public Use
  Company Number: US-BIOGENIDEC-2011BI030586

PATIENT
  Age: 47 Year
  Sex: Female

DRUGS (1)
  1. TYSABRI [Suspect]
     Indication: MULTIPLE SCLEROSIS
     Route: 042
     Dates: start: 20090615

REACTIONS (9)
  - HEADACHE [None]
  - PAIN [None]
  - DEPRESSED MOOD [None]
  - BRAIN OPERATION [None]
  - EYE SWELLING [None]
  - ITCHING SCAR [None]
  - PROCEDURAL COMPLICATION [None]
  - DRUG WITHDRAWAL SYNDROME [None]
  - FALL [None]
